FAERS Safety Report 14587481 (Version 4)
Quarter: 2019Q1

REPORT INFORMATION
  Report Type: Spontaneous
  Country: JP (occurrence: JP)
  Receive Date: 20180301
  Receipt Date: 20190102
  Transmission Date: 20190417
  Serious: Yes (Hospitalization, Other)
  Sender: FDA-Public Use
  Company Number: JP-JNJFOC-20180238472

PATIENT
  Age: 67 Year
  Sex: Male
  Weight: 85 kg

DRUGS (13)
  1. BAYASPIRIN [Concomitant]
     Active Substance: ASPIRIN
     Route: 048
     Dates: start: 20140405, end: 20171111
  2. MAINTATE [Concomitant]
     Active Substance: BISOPROLOL FUMARATE
     Route: 048
     Dates: start: 20140405, end: 20171111
  3. TENELIA [Concomitant]
     Active Substance: TENELIGLIPTIN
     Indication: TYPE 2 DIABETES MELLITUS
     Route: 048
     Dates: start: 20150822, end: 20171111
  4. GLIMEPIRIDE. [Concomitant]
     Active Substance: GLIMEPIRIDE
     Indication: TYPE 2 DIABETES MELLITUS
     Route: 048
     Dates: start: 20151031, end: 20170201
  5. MINIPRESS [Concomitant]
     Active Substance: PRAZOSIN HYDROCHLORIDE
     Route: 048
     Dates: start: 20140809, end: 20170201
  6. OLMETEC [Concomitant]
     Active Substance: OLMESARTAN MEDOXOMIL
     Route: 048
     Dates: start: 20140906, end: 20171111
  7. CRESTOR [Concomitant]
     Active Substance: ROSUVASTATIN CALCIUM
     Route: 048
     Dates: start: 20140405, end: 20171111
  8. CANAGLU [Suspect]
     Active Substance: CANAGLIFLOZIN
     Indication: TYPE 2 DIABETES MELLITUS
     Dosage: ALTERNATE DAYS
     Route: 048
     Dates: start: 20170624, end: 20171111
  9. ADALAT CRONO [Concomitant]
     Active Substance: NIFEDIPINE
     Route: 048
     Dates: start: 20140906, end: 20171111
  10. CANAGLU [Suspect]
     Active Substance: CANAGLIFLOZIN
     Indication: TYPE 2 DIABETES MELLITUS
     Route: 048
     Dates: start: 20160812, end: 20170220
  11. ADALAT CRONO [Concomitant]
     Active Substance: NIFEDIPINE
     Route: 048
     Dates: start: 20150906, end: 20171111
  12. NEXIUM [Concomitant]
     Active Substance: ESOMEPRAZOLE MAGNESIUM
     Route: 048
     Dates: start: 20131207, end: 20171111
  13. SIGMART [Concomitant]
     Active Substance: NICORANDIL
     Route: 048
     Dates: start: 20140405, end: 20171111

REACTIONS (3)
  - Off label use [Unknown]
  - Lung neoplasm malignant [Unknown]
  - Inappropriate schedule of product administration [Unknown]

NARRATIVE: CASE EVENT DATE: 20160812
